FAERS Safety Report 9506262 (Version 1)
Quarter: 2013Q1

REPORT INFORMATION
  Report Type: Spontaneous
  Country: US (occurrence: None)
  Receive Date: 20130305
  Receipt Date: 20130305
  Transmission Date: 20140127
  Serious: Yes (Other)
  Sender: FDA-Public Use
  Company Number: 163-21880-11092367

PATIENT
  Age: 65 Year
  Sex: Female

DRUGS (5)
  1. REVLIMID (LENALIDOMIDE) (CAPSULES) [Suspect]
     Indication: PLASMA CELL MYELOMA
     Dosage: 5 MG, 28 IN 28 D, PO
     Route: 048
     Dates: start: 20090120
  2. ZEMPLAR (PARICALCITOL) [Concomitant]
  3. TYLENOL (PARACETAMOL) [Concomitant]
  4. FISH OIL (FISH OIL) [Concomitant]
  5. VITAMINS [Concomitant]

REACTIONS (1)
  - Muscle spasms [None]
